FAERS Safety Report 5105612-8 (Version None)
Quarter: 2006Q3

REPORT INFORMATION
  Report Type: 
  Country: None (occurrence: None)
  Receive Date: 20060915
  Receipt Date: 20060601
  Transmission Date: 20061208
  Serious: Yes (Other)
  Sender: FDA-Public Use
  Company Number: US-PURDUE-USA_2006_0024361

PATIENT
  Age: 47 Year
  Sex: Male
  Weight: 75 kg

DRUGS (2)
  1. OXYCONTIN [Suspect]
     Indication: BACK PAIN
     Dosage: 40 MG, SEE TEXT
     Route: 048
     Dates: start: 20000101, end: 20060210
  2. KLONOPIN [Concomitant]
     Indication: DRUG USE FOR UNKNOWN INDICATION
     Dosage: 2 MG, DAILY
     Route: 048

REACTIONS (10)
  - BACK PAIN [None]
  - DRUG ABUSER [None]
  - DRUG TOLERANCE [None]
  - DRUG WITHDRAWAL SYNDROME [None]
  - IMPAIRED DRIVING ABILITY [None]
  - INSOMNIA [None]
  - INTENTIONAL DRUG MISUSE [None]
  - PAIN [None]
  - SLEEP DISORDER [None]
  - SUICIDAL IDEATION [None]
